FAERS Safety Report 14480666 (Version 7)
Quarter: 2018Q2

REPORT INFORMATION
  Report Type: Report from Study
  Country: US (occurrence: US)
  Receive Date: 20180202
  Receipt Date: 20180425
  Transmission Date: 20180711
  Serious: Yes (Hospitalization, Other)
  Sender: FDA-Public Use
  Company Number: US-JNJFOC-20180200320

PATIENT
  Age: 65 Year
  Sex: Male

DRUGS (4)
  1. IMBRUVICA [Suspect]
     Active Substance: IBRUTINIB
     Indication: CHRONIC LYMPHOCYTIC LEUKAEMIA
     Dosage: 420 MG, QD
     Route: 048
     Dates: start: 20171218
  2. MULTIVITAMINS [Concomitant]
     Active Substance: VITAMINS
     Dosage: ONE PER DAY
  3. IMBRUVICA [Suspect]
     Active Substance: IBRUTINIB
     Indication: CHRONIC LYMPHOCYTIC LEUKAEMIA
     Dosage: 420 MG, QD
     Route: 048
     Dates: start: 20180218
  4. VITAMINS NOS [Concomitant]
     Active Substance: VITAMINS
     Dosage: UNK

REACTIONS (28)
  - Headache [Recovered/Resolved]
  - Neutrophil count decreased [Not Recovered/Not Resolved]
  - Petechiae [Recovering/Resolving]
  - Platelet count decreased [Not Recovered/Not Resolved]
  - Loss of consciousness [Recovered/Resolved]
  - Tongue fungal infection [Recovered/Resolved]
  - Post procedural haemorrhage [Recovered/Resolved]
  - Seizure [Recovered/Resolved]
  - Bladder disorder [Recovering/Resolving]
  - Red blood cell count decreased [Not Recovered/Not Resolved]
  - White blood cell count increased [Not Recovered/Not Resolved]
  - Contusion [Not Recovered/Not Resolved]
  - Atrial fibrillation [Not Recovered/Not Resolved]
  - Gastrointestinal disorder [Recovered/Resolved]
  - Oral contusion [Not Recovered/Not Resolved]
  - Fatigue [Recovered/Resolved]
  - Oral pain [Not Recovered/Not Resolved]
  - Heart rate increased [Not Recovered/Not Resolved]
  - Vomiting [Unknown]
  - Gastrointestinal inflammation [Recovered/Resolved]
  - Wound [Recovered/Resolved]
  - Cardiac disorder [Not Recovered/Not Resolved]
  - Facial bones fracture [Recovered/Resolved]
  - Blood blister [Recovering/Resolving]
  - Dyspepsia [Recovering/Resolving]
  - Gingival bleeding [Not Recovered/Not Resolved]
  - Blood pressure increased [Not Recovered/Not Resolved]
  - Stomatitis [Not Recovered/Not Resolved]

NARRATIVE: CASE EVENT DATE: 201712
